FAERS Safety Report 4841808-8 (Version None)
Quarter: 2005Q4

REPORT INFORMATION
  Report Type: 
  Country: None (occurrence: None)
  Receive Date: 20051130
  Receipt Date: 20051116
  Transmission Date: 20060501
  Serious: Yes (Hospitalization, Other)
  Sender: FDA-Public Use
  Company Number: PHBS2005JP16821

PATIENT
  Age: 6 Year
  Sex: Male

DRUGS (3)
  1. PREDNISOLONE [Concomitant]
     Indication: BONE MARROW TRANSPLANT
     Dates: start: 20050101
  2. METHOTREXATE [Concomitant]
     Indication: BONE MARROW TRANSPLANT
     Dates: start: 20040601
  3. CYCLOSPORINE [Suspect]
     Indication: BONE MARROW TRANSPLANT
     Route: 065
     Dates: start: 20040601

REACTIONS (2)
  - OBLITERATIVE BRONCHIOLITIS [None]
  - REVERSIBLE POSTERIOR LEUKOENCEPHALOPATHY SYNDROME [None]
